FAERS Safety Report 10241216 (Version 3)
Quarter: 2015Q1

REPORT INFORMATION
  Report Type: Spontaneous
  Country: US (occurrence: US)
  Receive Date: 20140617
  Receipt Date: 20150226
  Transmission Date: 20150720
  Serious: Yes (Disabling)
  Sender: FDA-Public Use
  Company Number: US-009507513-1406USA007816

PATIENT
  Sex: Male
  Weight: 87.76 kg

DRUGS (3)
  1. FINASTERIDE. [Suspect]
     Active Substance: FINASTERIDE
     Indication: ALOPECIA
     Dosage: TAKE 1/5 OF 5MG TAB DAILY
     Dates: start: 2004, end: 2011
  2. PROPECIA [Suspect]
     Active Substance: FINASTERIDE
     Indication: ALOPECIA
     Dosage: 1 MG, QD
     Route: 048
     Dates: start: 2004, end: 2011
  3. FINASTERIDE. [Suspect]
     Active Substance: FINASTERIDE
     Dosage: TAKE 1/4 OF 5MG TAB DAILY
     Dates: start: 20110117

REACTIONS (22)
  - Epididymitis [Unknown]
  - Libido decreased [Not Recovered/Not Resolved]
  - Varicocele [Unknown]
  - Orgasmic sensation decreased [Unknown]
  - Sexual dysfunction [Not Recovered/Not Resolved]
  - Pruritus [Unknown]
  - Ejaculation disorder [Not Recovered/Not Resolved]
  - Molluscum contagiosum [Unknown]
  - Bronchitis [Unknown]
  - Testicular pain [Unknown]
  - Depression [Not Recovered/Not Resolved]
  - Cognitive disorder [Not Recovered/Not Resolved]
  - Anxiety [Not Recovered/Not Resolved]
  - Haemangioma [Unknown]
  - Insomnia [Unknown]
  - Epididymal cyst [Unknown]
  - Nervous system disorder [Not Recovered/Not Resolved]
  - Ejaculation failure [Not Recovered/Not Resolved]
  - Wrong technique in drug usage process [Unknown]
  - Cyst removal [Unknown]
  - Wrong technique in drug usage process [Unknown]
  - Erectile dysfunction [Not Recovered/Not Resolved]

NARRATIVE: CASE EVENT DATE: 2004
